FAERS Safety Report 10336931 (Version 4)
Quarter: 2015Q3

REPORT INFORMATION
  Report Type: Spontaneous
  Country: US (occurrence: US)
  Receive Date: 20140723
  Receipt Date: 20150714
  Transmission Date: 20151125
  Serious: Yes (Hospitalization)
  Sender: FDA-Public Use
  Company Number: US-INCYTE CORPORATION-2014IN002019

PATIENT
  Age: 61 Year
  Sex: Male

DRUGS (17)
  1. JAKAFI [Suspect]
     Active Substance: RUXOLITINIB
     Indication: MYELOFIBROSIS
     Dosage: 20 MG, EVERY MORNING
     Route: 048
     Dates: start: 20131001, end: 20140708
  2. JAKAFI [Suspect]
     Active Substance: RUXOLITINIB
     Dosage: 10 MG, BID
     Route: 048
  3. TERAZOSIN [Concomitant]
     Active Substance: TERAZOSIN\TERAZOSIN HYDROCHLORIDE
  4. FIBER [Concomitant]
     Active Substance: PSYLLIUM HUSK
  5. LOSARTAN. [Concomitant]
     Active Substance: LOSARTAN
  6. D3 [Concomitant]
     Active Substance: 25-HYDROXYCHOLECALCIFEROL, 5-TRANS-
  7. PROCRIT [Concomitant]
     Active Substance: ERYTHROPOIETIN
  8. CLONIDINE. [Concomitant]
     Active Substance: CLONIDINE
  9. LISINOPRIL. [Concomitant]
     Active Substance: LISINOPRIL
  10. JAKAFI [Suspect]
     Active Substance: RUXOLITINIB
     Dosage: 15 MG, BID
     Route: 048
  11. PROTONIX [Concomitant]
     Active Substance: PANTOPRAZOLE SODIUM
  12. FAMOTIDINE. [Concomitant]
     Active Substance: FAMOTIDINE
  13. LASIX [Concomitant]
     Active Substance: FUROSEMIDE
  14. CARVEDILOL. [Concomitant]
     Active Substance: CARVEDILOL
  15. MELATONIN [Concomitant]
     Active Substance: MELATONIN
  16. PROMETHAZINE [Concomitant]
     Active Substance: PROMETHAZINE\PROMETHAZINE HYDROCHLORIDE
  17. ALLOPURINOL. [Concomitant]
     Active Substance: ALLOPURINOL

REACTIONS (8)
  - Pneumonia [Unknown]
  - Haematemesis [Recovering/Resolving]
  - Oesophageal ulcer haemorrhage [Recovering/Resolving]
  - Abdominal distension [Not Recovered/Not Resolved]
  - Dehydration [Not Recovered/Not Resolved]
  - Haematochezia [Recovering/Resolving]
  - Weight decreased [Recovering/Resolving]
  - Blood count abnormal [Unknown]

NARRATIVE: CASE EVENT DATE: 20140708
